FAERS Safety Report 7949687-7 (Version None)
Quarter: 2011Q4

REPORT INFORMATION
  Report Type: 
  Country: None (occurrence: None)
  Receive Date: 20111130
  Receipt Date: 20111118
  Transmission Date: 20120403
  Serious: Yes (Hospitalization)
  Sender: FDA-Public Use
  Company Number: US-BAYER-2010-009088

PATIENT
  Age: 20 Year
  Sex: Female
  Weight: 55.238 kg

DRUGS (1)
  1. YAZ [Suspect]
     Indication: ORAL CONTRACEPTION
     Dosage: UNK
     Dates: start: 20080101, end: 20081016

REACTIONS (8)
  - PULMONARY EMBOLISM [None]
  - PAIN [None]
  - CHEST PAIN [None]
  - EMOTIONAL DISTRESS [None]
  - DYSPNOEA [None]
  - COUGH [None]
  - THROMBOPHLEBITIS SUPERFICIAL [None]
  - PAIN IN EXTREMITY [None]
